FAERS Safety Report 5866507-5 (Version None)
Quarter: 2008Q3

REPORT INFORMATION
  Report Type: 
  Country: None (occurrence: None)
  Receive Date: 20080902
  Receipt Date: 20080902
  Transmission Date: 20090109
  Serious: Yes (Hospitalization)
  Sender: FDA-Public Use
  Company Number: PHEH1995US00949

PATIENT
  Sex: Male
  Weight: 70.6 kg

DRUGS (5)
  1. NEORAL [Suspect]
     Route: 048
     Dates: start: 19950302
  2. PREDNISONE TAB [Concomitant]
  3. IMURAN [Concomitant]
  4. PROCARDIA [Concomitant]
     Dosage: UNSPECIFIED
  5. BIAXIN [Concomitant]
     Dosage: UNSPECIFIED

REACTIONS (4)
  - ABSCESS [None]
  - HEPATIC NECROSIS [None]
  - RENAL FAILURE ACUTE [None]
  - SEPSIS [None]
